FAERS Safety Report 8400027-9 (Version None)
Quarter: 2012Q2

REPORT INFORMATION
  Report Type: 
  Country: None (occurrence: None)
  Receive Date: 20120531
  Receipt Date: 20120521
  Transmission Date: 20120825
  Serious: Yes (Hospitalization, Other)
  Sender: FDA-Public Use
  Company Number: FR-ABBOTT-12P-056-0936915-00

PATIENT
  Sex: Male

DRUGS (6)
  1. PENTOXIFYLLINE [Suspect]
     Indication: HEART VALVE REPLACEMENT
     Dates: start: 20020101
  2. FUROSEMIDE [Concomitant]
     Indication: PRODUCT USED FOR UNKNOWN INDICATION
  3. LEUPROLIDE ACETATE [Suspect]
     Indication: PROSTATE CANCER
     Route: 058
     Dates: start: 20100606
  4. ATENOLOL [Concomitant]
     Indication: HYPERTENSION
  5. CASODEX [Concomitant]
     Indication: PROSTATE CANCER
     Dates: start: 20070101, end: 20120421
  6. POTASSIUM CHLORIDE [Concomitant]
     Indication: PRODUCT USED FOR UNKNOWN INDICATION

REACTIONS (1)
  - INJECTION SITE HAEMATOMA [None]
